FAERS Safety Report 5934066-4 (Version None)
Quarter: 2008Q4

REPORT INFORMATION
  Report Type: 
  Country: None (occurrence: None)
  Receive Date: 20081029
  Receipt Date: 20081024
  Transmission Date: 20090506
  Serious: Yes (Life-Threatening, Hospitalization)
  Sender: FDA-Public Use
  Company Number: JP-BRISTOL-MYERS SQUIBB COMPANY-14375232

PATIENT
  Age: 63 Year
  Sex: Male

DRUGS (4)
  1. AVAPRO [Suspect]
     Indication: HYPERTENSION
     Route: 048
     Dates: start: 20080925, end: 20080101
  2. AMARYL [Suspect]
     Route: 048
     Dates: start: 20080911, end: 20080101
  3. CRESTOR [Suspect]
     Route: 048
     Dates: start: 20080911, end: 20080101
  4. LANTUS [Suspect]
     Dosage: 1 DOSAGE FORM = 4UNITS
     Route: 058
     Dates: start: 20080911, end: 20080101

REACTIONS (2)
  - CEREBRAL INFARCTION [None]
  - HEPATITIS FULMINANT [None]
